FAERS Safety Report 6271326-4 (Version None)
Quarter: 2009Q3

REPORT INFORMATION
  Report Type: 
  Country: None (occurrence: None)
  Receive Date: 20090716
  Receipt Date: 20090716
  Transmission Date: 20100115
  Serious: Yes (Death, Life-Threatening, Hospitalization, Other)
  Sender: FDA-Public Use
  Company Number: None

PATIENT
  Age: 31 Day
  Sex: Female
  Weight: 3.1752 kg

DRUGS (1)
  1. EFFEXOR XR [Suspect]
     Indication: DEPRESSION
     Dosage: 300 MG DAILY PO  ON AND OFF FOR 7 YEARS
     Route: 048

REACTIONS (14)
  - APGAR SCORE LOW [None]
  - CARDIAC ARREST [None]
  - CARDIAC DISORDER [None]
  - CRYING [None]
  - DEPRESSED LEVEL OF CONSCIOUSNESS [None]
  - DRUG EXPOSURE VIA BREAST MILK [None]
  - JAUNDICE NEONATAL [None]
  - MATERNAL DRUGS AFFECTING FOETUS [None]
  - NEONATAL RESPIRATORY ARREST [None]
  - POOR WEIGHT GAIN NEONATAL [None]
  - SOMNOLENCE NEONATAL [None]
  - VOMITING [None]
  - VOMITING PROJECTILE [None]
  - WEIGHT DECREASED [None]
